FAERS Safety Report 7378715-5 (Version None)
Quarter: 2011Q1

REPORT INFORMATION
  Report Type: 
  Country: None (occurrence: None)
  Receive Date: 20110328
  Receipt Date: 20110302
  Transmission Date: 20110831
  Serious: No
  Sender: FDA-Public Use
  Company Number: US-B.I. PHARMACEUTICALS,INC./RIDGEFIELD-2011-BP-01388BP

PATIENT
  Sex: Female

DRUGS (13)
  1. CETITIZINE [Concomitant]
     Dosage: 10 MG
  2. ESTROPIPATE [Concomitant]
     Dosage: 75 MG
  3. PLAVIX [Concomitant]
     Dosage: 75 MG
  4. BUPROPION HCL [Concomitant]
     Dosage: 300 MG
  5. SIMVASTATIN [Concomitant]
     Dosage: 20 MG
  6. AMIODARONE [Concomitant]
     Dosage: 100 MG
  7. VALTURNA [Concomitant]
     Dosage: 150-160MG; 1 DAILY
  8. PANTOPRAZOLE [Concomitant]
     Dosage: 40 MG
  9. VITAMIN TAB [Concomitant]
     Dosage: 1 TAB DAILY
  10. PRADAXA [Suspect]
     Indication: ATRIAL FIBRILLATION
     Dosage: 300 MG
     Route: 048
     Dates: start: 20101221
  11. VENLAFAXINE [Concomitant]
     Dosage: 150 MG
  12. ALENDRONATE [Concomitant]
     Dosage: 1 WEEK
  13. CALCIUM, MAG, ZINC [Concomitant]
     Dosage: 1 TAB TWICE DAILY

REACTIONS (1)
  - JOINT SWELLING [None]
